FAERS Safety Report 4426247-6 (Version None)
Quarter: 2004Q3

REPORT INFORMATION
  Report Type: 
  Country: None (occurrence: None)
  Receive Date: 20040811
  Receipt Date: 20040729
  Transmission Date: 20050211
  Serious: Yes (Other)
  Sender: FDA-Public Use
  Company Number: 2004226391US

PATIENT
  Age: 57 Year
  Sex: Female

DRUGS (2)
  1. PROVERA [Suspect]
     Dates: start: 19930301, end: 20020601
  2. PREMARIN [Suspect]
     Dates: start: 19980701, end: 20020601

REACTIONS (1)
  - BREAST CANCER FEMALE [None]
